FAERS Safety Report 9846960 (Version 1)
Quarter: 2013Q4

REPORT INFORMATION
  Report Type: Spontaneous
  Country: US (occurrence: None)
  Receive Date: 20131219
  Receipt Date: 20131219
  Transmission Date: 20140711
  Serious: Yes (Hospitalization)
  Sender: FDA-Public Use
  Company Number: 163-20785-13082836

PATIENT
  Age: 47 Year
  Sex: Male
  Weight: 99.8 kg

DRUGS (10)
  1. THALOMID [Suspect]
     Indication: PLASMA CELL MYELOMA
     Dosage: 4 IN 1 D
     Route: 048
     Dates: start: 200409
  2. EFFIENT [Concomitant]
  3. REGLAN [Concomitant]
  4. PERCOCET [Concomitant]
  5. ASPIRIN BUFFERED [Concomitant]
  6. XANAX [Concomitant]
  7. COZAAR [Concomitant]
  8. NEXIUM [Concomitant]
  9. VYTORIN [Concomitant]
  10. LOPRESSOR [Concomitant]

REACTIONS (1)
  - Myocardial infarction [None]
